FAERS Safety Report 18336972 (Version 2)
Quarter: 2020Q4

REPORT INFORMATION
  Report Type: Spontaneous
  Country: FR (occurrence: FR)
  Receive Date: 20201002
  Receipt Date: 20201211
  Transmission Date: 20210113
  Serious: Yes (Hospitalization)
  Sender: FDA-Public Use
  Company Number: FR-REGENERON PHARMACEUTICALS, INC.-2020-79170

PATIENT

DRUGS (1)
  1. LIBTAYO [Suspect]
     Active Substance: CEMIPLIMAB-RWLC
     Indication: SQUAMOUS CELL CARCINOMA OF SKIN
     Dosage: 350 MG, QCY
     Route: 042
     Dates: start: 20200805, end: 20200805

REACTIONS (6)
  - Myalgia [Not Recovered/Not Resolved]
  - Hepatocellular injury [Not Recovered/Not Resolved]
  - Autoimmune myositis [Recovered/Resolved]
  - Troponin increased [Not Recovered/Not Resolved]
  - Diplopia [Not Recovered/Not Resolved]
  - Blood creatine phosphokinase increased [Not Recovered/Not Resolved]

NARRATIVE: CASE EVENT DATE: 20200825
